FAERS Safety Report 8839522 (Version 1)
Quarter: 2012Q4

REPORT INFORMATION
  Report Type: 
  Country: NZ (occurrence: NZ)
  Receive Date: 20121015
  Receipt Date: 20121015
  Transmission Date: 20130627
  Serious: Yes (Death, Other)
  Sender: FDA-Public Use
  Company Number: PHHY2012NZ090387

PATIENT
  Sex: Male

DRUGS (1)
  1. CLOZARIL [Suspect]
     Indication: SCHIZOPHRENIA
     Dates: start: 20021129

REACTIONS (7)
  - Hepatic failure [Fatal]
  - Cirrhosis alcoholic [Fatal]
  - Neoplasm [Fatal]
  - Ascites [Unknown]
  - Hepatitis C [Unknown]
  - Malaise [Unknown]
  - Salivary hypersecretion [Unknown]
